FAERS Safety Report 9804484 (Version 1)
Quarter: 2014Q1

REPORT INFORMATION
  Report Type: Spontaneous
  Country: US (occurrence: US)
  Receive Date: 20140108
  Receipt Date: 20140108
  Transmission Date: 20141002
  Serious: Yes (Death)
  Sender: FDA-Public Use
  Company Number: US-GLAXOSMITHKLINE-A1055172A

PATIENT
  Age: 62 Year
  Sex: Male

DRUGS (6)
  1. ARIXTRA [Suspect]
     Indication: CARDIAC VALVE DISEASE
     Route: 065
     Dates: start: 201309
  2. BLOOD PRESSURE MEDICATION [Concomitant]
  3. TOPROL [Concomitant]
  4. CHEMOTHERAPY [Concomitant]
  5. HEART MEDICATION [Concomitant]
  6. LORCET [Concomitant]

REACTIONS (1)
  - Neoplasm malignant [Fatal]
